FAERS Safety Report 5265277-1 (Version None)
Quarter: 2007Q1

REPORT INFORMATION
  Report Type: 
  Country: None (occurrence: None)
  Receive Date: 20061121
  Receipt Date: 20060821
  Transmission Date: 20070707
  Serious: No
  Sender: FDA-Public Use
  Company Number: TPA2005A01356

PATIENT
  Sex: Female

DRUGS (10)
  1. ROZEREM [Suspect]
     Indication: MIDDLE INSOMNIA
     Dosage: 8 MG, 1 IN 1 D, PER ORAL
     Route: 048
     Dates: start: 20051004, end: 20051010
  2. ROZEREM [Suspect]
     Indication: POOR QUALITY SLEEP
     Dosage: 8 MG, 1 IN 1 D, PER ORAL
     Route: 048
     Dates: start: 20051004, end: 20051010
  3. KLONOPIN [Concomitant]
  4. LITHIUM CARBONATE [Concomitant]
  5. LEVOXYL [Concomitant]
  6. PREMARIN [Concomitant]
  7. ADVAIR DISKUS 100/50 [Concomitant]
  8. NASONEX [Concomitant]
  9. TRICOR [Concomitant]
  10. LOVASTATIN [Concomitant]

REACTIONS (2)
  - DRUG INTERACTION [None]
  - PRURITUS [None]
